FAERS Safety Report 20696357 (Version 1)
Quarter: 2022Q2

REPORT INFORMATION
  Report Type: Spontaneous
  Country: US (occurrence: US)
  Receive Date: 20220411
  Receipt Date: 20220411
  Transmission Date: 20220720
  Serious: No
  Sender: FDA-Public Use
  Company Number: US-KVK-TECH, INC-20210800093

PATIENT
  Sex: Female
  Weight: 99.773 kg

DRUGS (2)
  1. PHENTERMINE HYDROCHLORIDE [Suspect]
     Active Substance: PHENTERMINE HYDROCHLORIDE
     Indication: Product used for unknown indication
     Dosage: 37.5 MILLIGRAM, QD (1 TIME DAILY IN THE MORNING)
     Route: 048
     Dates: start: 20210624, end: 20210709
  2. HYDROCHLOROTHIAZIDE [Concomitant]
     Active Substance: HYDROCHLOROTHIAZIDE
     Indication: Product used for unknown indication
     Dosage: TABLET
     Route: 065

REACTIONS (6)
  - Dysgeusia [Not Recovered/Not Resolved]
  - Expired product administered [Unknown]
  - Drug ineffective [Unknown]
  - Product odour abnormal [Unknown]
  - Product taste abnormal [Unknown]
  - Product dispensing error [Unknown]

NARRATIVE: CASE EVENT DATE: 20210101
